FAERS Safety Report 9054235 (Version 1)
Quarter: 2013Q1

REPORT INFORMATION
  Report Type: Spontaneous
  Country: US (occurrence: US)
  Receive Date: 20130208
  Receipt Date: 20130208
  Transmission Date: 20140127
  Serious: Yes (Hospitalization)
  Sender: FDA-Public Use
  Company Number: US-GLAXOSMITHKLINE-A0897100A

PATIENT
  Age: 54 Year
  Sex: Female
  Weight: 100.9 kg

DRUGS (3)
  1. AVANDIA [Suspect]
     Indication: TYPE 2 DIABETES MELLITUS
     Dosage: 4MG TWICE PER DAY
     Route: 048
     Dates: start: 20050429, end: 20081007
  2. AVANDAMET [Suspect]
     Indication: DIABETES MELLITUS
     Route: 048
     Dates: start: 20041022, end: 20050429
  3. ACTOS [Concomitant]

REACTIONS (4)
  - Angina pectoris [Not Recovered/Not Resolved]
  - Cardiac failure congestive [Unknown]
  - Hypertension [Unknown]
  - Chest pain [Unknown]
